FAERS Safety Report 14111143 (Version 1)
Quarter: 2017Q4

REPORT INFORMATION
  Report Type: Report from Study
  Country: GB (occurrence: GB)
  Receive Date: 20171020
  Receipt Date: 20171020
  Transmission Date: 20180321
  Serious: Yes (Other)
  Sender: FDA-Public Use
  Company Number: GB-UCBSA-2017041409

PATIENT
  Age: 69 Year
  Sex: Female

DRUGS (3)
  1. RASAGILINE. [Concomitant]
     Active Substance: RASAGILINE
     Indication: PRODUCT USED FOR UNKNOWN INDICATION
  2. PROPRANOLOL [Concomitant]
     Active Substance: PROPRANOLOL HYDROCHLORIDE
     Indication: PRODUCT USED FOR UNKNOWN INDICATION
  3. ROTIGOTINE [Suspect]
     Active Substance: ROTIGOTINE
     Indication: PARKINSONISM
     Dosage: UNK

REACTIONS (14)
  - Dysphagia [Unknown]
  - Malaise [Unknown]
  - Poor quality sleep [Unknown]
  - Disturbance in attention [Unknown]
  - Drooling [Unknown]
  - Tremor [Unknown]
  - Choking [Unknown]
  - Middle insomnia [Unknown]
  - Vomiting [Unknown]
  - Anosmia [Unknown]
  - Anal incontinence [Unknown]
  - Insomnia [Unknown]
  - Ageusia [Unknown]
  - Stress [Unknown]
